FAERS Safety Report 18833034 (Version 1)
Quarter: 2021Q1

REPORT INFORMATION
  Report Type: Spontaneous
  Country: MA (occurrence: MA)
  Receive Date: 20210203
  Receipt Date: 20210203
  Transmission Date: 20210419
  Serious: Yes (Other)
  Sender: FDA-Public Use
  Company Number: MA-SUN PHARMACEUTICAL INDUSTRIES LTD-2021R1-278871

PATIENT
  Age: 68 Year
  Sex: Female

DRUGS (1)
  1. LITHIUM. [Suspect]
     Active Substance: LITHIUM
     Indication: BIPOLAR DISORDER
     Dosage: 500 MILLIGRAM UNK
     Route: 065

REACTIONS (4)
  - Blood parathyroid hormone increased [Unknown]
  - Hallucination, visual [Not Recovered/Not Resolved]
  - Hypercalcaemia [Recovered/Resolved]
  - Parathyroid tumour benign [Unknown]
